FAERS Safety Report 7212283-3 (Version None)
Quarter: 2011Q1

REPORT INFORMATION
  Report Type: 
  Country: None (occurrence: None)
  Receive Date: 20110106
  Receipt Date: 20101227
  Transmission Date: 20110831
  Serious: Yes (Other)
  Sender: FDA-Public Use
  Company Number: PHHY2010US88711

PATIENT

DRUGS (11)
  1. TEKTURNA [Suspect]
     Dosage: 150 MG, BID
     Dates: start: 20081227, end: 20101227
  2. VICODIN [Concomitant]
  3. COZAAR [Concomitant]
  4. DILTIAZEM [Concomitant]
  5. SAW PALMETTO [Concomitant]
     Dosage: UNK
  6. EXCEDRIN (MIGRAINE) [Concomitant]
  7. TEKTURNA [Suspect]
     Dosage: 300 MG, UNK
  8. CLONIDINE [Concomitant]
  9. HYDROCHLOROTHIAZIDE [Concomitant]
  10. MULTI-VITAMINS [Concomitant]
  11. ZESTRIL [Concomitant]

REACTIONS (7)
  - JOINT SWELLING [None]
  - SWELLING [None]
  - FATIGUE [None]
  - ASTHENIA [None]
  - COUGH [None]
  - SOMNOLENCE [None]
  - HYPERTENSION [None]
